FAERS Safety Report 8473248-7 (Version None)
Quarter: 2012Q2

REPORT INFORMATION
  Report Type: 
  Country: None (occurrence: None)
  Receive Date: 20120627
  Receipt Date: 20120625
  Transmission Date: 20120825
  Serious: Yes (Other)
  Sender: FDA-Public Use
  Company Number: ES-MERCK-1206ESP00033

PATIENT
  Age: 69 Year
  Sex: Male

DRUGS (1)
  1. COSOPT [Suspect]
     Indication: GLAUCOMA
     Route: 047
     Dates: start: 20120115, end: 20120130

REACTIONS (3)
  - PRURITUS GENERALISED [None]
  - SENSORY LOSS [None]
  - PAIN IN EXTREMITY [None]
